FAERS Safety Report 8832786 (Version 2)
Quarter: 2013Q1

REPORT INFORMATION
  Report Type: Report from Study
  Country: JP (occurrence: JP)
  Receive Date: 20121010
  Receipt Date: 20130227
  Transmission Date: 20140127
  Serious: No
  Sender: FDA-Public Use
  Company Number: JP-009507513-1210JPN002884

PATIENT
  Age: 66 Year
  Sex: Male
  Weight: 64 kg

DRUGS (17)
  1. PEGINTRON [Suspect]
     Indication: CHRONIC HEPATITIS C
     Dosage: 1.2 MICROGRAM PER KILOGRAM, QW
     Route: 058
     Dates: start: 20120111, end: 20120118
  2. PEGINTRON [Suspect]
     Dosage: 0.94 MICROGRAM PER KILOGRAM, QW
     Route: 058
     Dates: start: 20120125, end: 20120201
  3. PEGINTRON [Suspect]
     Dosage: 0.63 MICROGRAM PER KILOGRAM, QW
     Route: 058
     Dates: start: 20120208, end: 20120208
  4. PEGINTRON [Suspect]
     Dosage: 0.94 MICROGRAM PER KILOGRAM, QW
     Route: 058
     Dates: start: 20120215, end: 20120222
  5. PEGINTRON [Suspect]
     Dosage: 0.78 MICROGRAM PER KILOGRAM, QW
     Route: 058
     Dates: start: 20120229, end: 20120404
  6. PEGINTRON [Suspect]
     Dosage: 0.94 MICROGRAM PER KILOGRAM, QW
     Route: 058
     Dates: start: 20120411, end: 20120411
  7. PEGINTRON [Suspect]
     Dosage: 0.78 MICROGRAM PER KILOGRAM, QW
     Route: 058
     Dates: start: 20120418, end: 20120418
  8. PEGINTRON [Suspect]
     Dosage: 0.94 MICROGRAM PER KILOGRAM, QW
     Route: 058
     Dates: start: 20120425, end: 20120425
  9. PEGINTRON [Suspect]
     Dosage: 0.78 MICROGRAM PER KILOGRAM, QW
     Route: 058
     Dates: start: 20120502, end: 20120502
  10. PEGINTRON [Suspect]
     Dosage: 0.94 MICROGRAM PER KILOGRAM, QW
     Route: 058
     Dates: start: 20120509, end: 20120620
  11. REBETOL [Suspect]
     Indication: CHRONIC HEPATITIS C
     Dosage: 400 MG, QD
     Route: 048
     Dates: start: 20120111, end: 20120626
  12. TELAVIC [Suspect]
     Indication: CHRONIC HEPATITIS C
     Dosage: 1500 MG, QD
     Route: 048
     Dates: start: 20120111, end: 20120404
  13. ACTOS [Concomitant]
     Indication: DIABETES MELLITUS
     Dosage: 15 MG, QD
     Route: 048
  14. HARNAL [Concomitant]
     Indication: BENIGN PROSTATIC HYPERPLASIA
     Dosage: 0.2 MG, QD
     Route: 048
  15. LENDORMIN [Concomitant]
     Indication: INSOMNIA
     Dosage: 0.25 MG, QD
     Route: 048
  16. XYZAL [Concomitant]
     Indication: PROPHYLAXIS
     Dosage: 5 MG, QD
     Route: 048
     Dates: start: 20120111, end: 20120626
  17. LOXOPROFEN [Concomitant]
     Indication: PROPHYLAXIS
     Dosage: 180 MG, QD
     Route: 048
     Dates: start: 20120111, end: 20120626

REACTIONS (3)
  - Erythema multiforme [Recovered/Resolved]
  - White blood cell count decreased [Recovered/Resolved]
  - Platelet count decreased [Recovered/Resolved]
